FAERS Safety Report 8999478 (Version 1)
Quarter: 2013Q1

REPORT INFORMATION
  Report Type: Spontaneous
  Country: FR (occurrence: FR)
  Receive Date: 20130103
  Receipt Date: 20130103
  Transmission Date: 20140127
  Serious: Yes (Hospitalization)
  Sender: FDA-Public Use
  Company Number: FR-GLAXOSMITHKLINE-B0855161A

PATIENT
  Sex: Male

DRUGS (3)
  1. BETNEVAL [Suspect]
     Indication: DERMATITIS EXFOLIATIVE
     Route: 061
     Dates: start: 201012, end: 201112
  2. BETNEVAL [Suspect]
     Indication: MYCOSIS FUNGOIDES
     Route: 061
     Dates: start: 201009, end: 201011
  3. BETNEVAL [Suspect]
     Indication: DERMATITIS EXFOLIATIVE
     Route: 061
     Dates: start: 201009, end: 201012

REACTIONS (1)
  - Osteonecrosis [Not Recovered/Not Resolved]
